FAERS Safety Report 15406446 (Version 1)
Quarter: 2018Q3

REPORT INFORMATION
  Report Type: Spontaneous
  Country: US (occurrence: US)
  Receive Date: 20180912
  Receipt Date: 20180912
  Transmission Date: 20181010
  Serious: Yes (Life-Threatening, Hospitalization)
  Sender: FDA-Public Use
  Company Number: None

PATIENT
  Age: 68 Year
  Sex: Male

DRUGS (2)
  1. INSULIN [Suspect]
     Active Substance: INSULIN NOS
     Indication: DIABETES MELLITUS
     Route: 058
     Dates: start: 20180818
  2. INSULIN [Suspect]
     Active Substance: INSULIN NOS
     Indication: DIABETES MELLITUS
     Route: 058
     Dates: start: 20180818

REACTIONS (16)
  - Moaning [None]
  - Blood lactic acid increased [None]
  - Troponin increased [None]
  - Infection [None]
  - Sepsis [None]
  - Posturing [None]
  - Hypoglycaemic encephalopathy [None]
  - Unresponsive to stimuli [None]
  - Blood pressure systolic increased [None]
  - Leukopenia [None]
  - Confusional state [None]
  - Somnolence [None]
  - Blood glucose increased [None]
  - Hypothermia [None]
  - Anal incontinence [None]
  - Mental status changes [None]

NARRATIVE: CASE EVENT DATE: 20180904
